FAERS Safety Report 10256463 (Version 2)
Quarter: 2014Q2

REPORT INFORMATION
  Report Type: Report from Study
  Country: BE (occurrence: BE)
  Receive Date: 20140624
  Receipt Date: 20140624
  Transmission Date: 20141212
  Serious: Yes (Hospitalization, Other)
  Sender: FDA-Public Use
  Company Number: BE-JNJFOC-20130706425

PATIENT
  Age: 86 Year
  Sex: Female
  Weight: 70 kg

DRUGS (15)
  1. RIVAROXABAN [Suspect]
     Indication: ATRIAL FIBRILLATION
     Route: 048
     Dates: start: 201212, end: 20130619
  2. RIVAROXABAN [Suspect]
     Indication: CEREBROVASCULAR ACCIDENT PROPHYLAXIS
     Route: 048
     Dates: start: 201212, end: 20130619
  3. DAFLON [Suspect]
     Indication: PRODUCT USED FOR UNKNOWN INDICATION
     Dosage: 500 (DIOSMIN 450 MG + FLAVONOIDS, HISPERIDINE 50 MG)
     Route: 065
  4. VENLAFAXINE [Suspect]
     Indication: DEPRESSION
     Dosage: 37.5 (UNITS UNSPECIFIED)
     Route: 048
  5. COVERSYL [Concomitant]
     Indication: PRODUCT USED FOR UNKNOWN INDICATION
     Route: 065
  6. HEPARIN [Concomitant]
     Route: 065
  7. DUOTRAV [Concomitant]
     Dosage: TIMOLOL (MALEAAT) 5 MG + TRAVOPROST 40 G/ML
     Route: 065
  8. ORTHO-GYNEST D [Concomitant]
     Route: 065
  9. BURINEX [Concomitant]
     Indication: HYPERTENSION
     Route: 065
  10. AZOPT [Concomitant]
     Route: 065
  11. ALDACTONE [Concomitant]
     Indication: HYPERTENSION
     Route: 065
  12. PANTOPRAZOLE SODIUM [Concomitant]
     Dosage: 20 (UNITS UNSPECIFIED)
     Route: 048
  13. MATRIFEN [Concomitant]
     Dosage: 12 (UNITS UNSPECIFIED)
     Route: 062
  14. LOESFERRON [Concomitant]
     Indication: MINERAL SUPPLEMENTATION
     Route: 048
  15. SINTRON [Concomitant]
     Route: 065

REACTIONS (3)
  - Rectal haemorrhage [Recovered/Resolved]
  - Transient ischaemic attack [Recovered/Resolved]
  - Anaemia [Unknown]
